FAERS Safety Report 9865903 (Version 1)
Quarter: 2014Q1

REPORT INFORMATION
  Report Type: Spontaneous
  Country: US (occurrence: US)
  Receive Date: 20140203
  Receipt Date: 20140203
  Transmission Date: 20141002
  Serious: No
  Sender: FDA-Public Use
  Company Number: US-ALLERGAN-1313411US

PATIENT
  Sex: Male

DRUGS (1)
  1. RESTASIS [Suspect]
     Indication: DRY EYE
     Dosage: UNK
     Route: 047
     Dates: start: 20130826, end: 20130830

REACTIONS (4)
  - Eye irritation [Unknown]
  - Eye pain [Unknown]
  - Ocular hyperaemia [Unknown]
  - Ocular discomfort [Unknown]
